FAERS Safety Report 7832608-5 (Version None)
Quarter: 2011Q4

REPORT INFORMATION
  Report Type: 
  Country: None (occurrence: None)
  Receive Date: 20111024
  Receipt Date: 20111013
  Transmission Date: 20120403
  Serious: No
  Sender: FDA-Public Use
  Company Number: US-BIOGENIDEC-2011BI007756

PATIENT
  Sex: Male

DRUGS (3)
  1. TYSABRI [Suspect]
     Dates: start: 20110811
  2. AVONEX [Concomitant]
     Indication: MULTIPLE SCLEROSIS
     Route: 030
  3. TYSABRI [Suspect]
     Indication: MULTIPLE SCLEROSIS
     Route: 042
     Dates: start: 20080326, end: 20110217

REACTIONS (4)
  - MENTAL IMPAIRMENT [None]
  - FATIGUE [None]
  - MUSCULAR WEAKNESS [None]
  - PAIN IN EXTREMITY [None]
